FAERS Safety Report 6121800-6 (Version None)
Quarter: 2009Q1

REPORT INFORMATION
  Report Type: 
  Country: None (occurrence: None)
  Receive Date: 20090313
  Receipt Date: 20090313
  Transmission Date: 20090719
  Serious: Yes (Hospitalization)
  Sender: FDA-Public Use
  Company Number: None

PATIENT
  Age: 85 Year
  Sex: Male
  Weight: 51 kg

DRUGS (1)
  1. MOXIFLOXACIN HCL [Suspect]
     Indication: PNEUMONIA
     Dosage: 400 MG ONCE IV
     Route: 042
     Dates: start: 20090111, end: 20090111

REACTIONS (3)
  - ANAPHYLACTIC REACTION [None]
  - COUGH [None]
  - WHEEZING [None]
